FAERS Safety Report 26077901 (Version 1)
Quarter: 2025Q4

REPORT INFORMATION
  Report Type: Spontaneous
  Country: US (occurrence: US)
  Receive Date: 20251122
  Receipt Date: 20251122
  Transmission Date: 20260118
  Serious: No
  Sender: MDD OPERATIONS
  Company Number: US-MDD US Operations-MDD202508-003350

PATIENT
  Age: 67 Year
  Sex: Female

DRUGS (6)
  1. ONAPGO [Suspect]
     Active Substance: APOMORPHINE HYDROCHLORIDE
     Indication: Parkinson^s disease
     Dosage: 16 HOURS INFUSION
     Dates: start: 20250819
  2. ONAPGO [Suspect]
     Active Substance: APOMORPHINE HYDROCHLORIDE
     Indication: Dyskinesia
     Dosage: 16 HOURS INFUSION
     Dates: start: 20250825
  3. ONAPGO [Suspect]
     Active Substance: APOMORPHINE HYDROCHLORIDE
     Indication: On and off phenomenon
     Dosage: 2.5MG PER HOUR UP TO 16 HOURS A DAY
  4. ONAPGO [Suspect]
     Active Substance: APOMORPHINE HYDROCHLORIDE
     Dosage: 3.5MG PER HOUR UP TO 16 HOURS A DAY
  5. ONAPGO [Suspect]
     Active Substance: APOMORPHINE HYDROCHLORIDE
     Dosage: 3MG PER HOUR UP TO 16 HOURS A DAY
  6. ONAPGO [Suspect]
     Active Substance: APOMORPHINE HYDROCHLORIDE
     Dosage: INFUSE CONTENTS OF 1 CARTRIDGE UNDER THE SKIN FOR 16 HOURS OR LESS EACH DAY. CONTINUOUS DOSE (MAX 6M
     Route: 058
     Dates: start: 202508

REACTIONS (6)
  - Injection site nodule [Unknown]
  - Rash [Unknown]
  - Injection site bruising [Unknown]
  - Injection site erythema [Not Recovered/Not Resolved]
  - Injection site pruritus [Unknown]
  - Somnolence [Recovering/Resolving]
